FAERS Safety Report 9449706 (Version 2)
Quarter: 2013Q3

REPORT INFORMATION
  Report Type: Spontaneous
  Country: US (occurrence: US)
  Receive Date: 20130809
  Receipt Date: 20130816
  Transmission Date: 20140515
  Serious: No
  Sender: FDA-Public Use
  Company Number: US-009507513-1307USA007962

PATIENT
  Age: 66 Year
  Sex: Male

DRUGS (3)
  1. PRINIVIL [Suspect]
     Indication: BLOOD PRESSURE ABNORMAL
     Dosage: 5 MG DAILY
     Route: 048
     Dates: start: 200307, end: 20130628
  2. ZOCOR [Concomitant]
     Dosage: UNKNOWN
     Route: 048
  3. METOPROLOL [Concomitant]
     Dosage: UNKNOWN

REACTIONS (1)
  - Cough [Recovered/Resolved]
